FAERS Safety Report 8249958-3 (Version None)
Quarter: 2012Q2

REPORT INFORMATION
  Report Type: 
  Country: None (occurrence: None)
  Receive Date: 20120402
  Receipt Date: 20120330
  Transmission Date: 20120825
  Serious: No
  Sender: FDA-Public Use
  Company Number: US-B.I. PHARMACEUTICALS,INC./RIDGEFIELD-2012-BP-03893BP

PATIENT
  Sex: Female

DRUGS (11)
  1. XYZAL [Concomitant]
     Indication: HYPERSENSITIVITY
     Dosage: 5 MG
     Route: 048
  2. NITROSTAT [Concomitant]
  3. FORTICAL [Concomitant]
  4. ADVAIR DISKUS 100/50 [Concomitant]
  5. SIMVASTATIN [Concomitant]
     Dosage: 20 MG
     Route: 048
  6. HYZAAR [Concomitant]
     Dosage: 50 MG
     Route: 048
  7. BYSTOLIC [Concomitant]
     Dosage: 20 MG
     Route: 048
  8. SPIRIVA [Suspect]
     Indication: CHRONIC OBSTRUCTIVE PULMONARY DISEASE
     Dosage: 18 MCG
     Route: 055
     Dates: start: 20120216
  9. RANITIDINE [Concomitant]
     Dosage: 300 MG
     Route: 048
  10. ASPIRIN [Concomitant]
     Dosage: 81 MG
     Route: 048
  11. RHINOCORT [Concomitant]

REACTIONS (2)
  - CONSTIPATION [None]
  - OCULAR HYPERAEMIA [None]
